FAERS Safety Report 12795458 (Version 1)
Quarter: 2016Q3

REPORT INFORMATION
  Report Type: Report from Study
  Country: ES (occurrence: ES)
  Receive Date: 20160929
  Receipt Date: 20160929
  Transmission Date: 20161109
  Serious: Yes (Hospitalization)
  Sender: FDA-Public Use
  Company Number: ES-ABBVIE-16K-144-1725569-00

PATIENT
  Age: 69 Year
  Sex: Female

DRUGS (1)
  1. DUODOPA [Suspect]
     Active Substance: CARBIDOPA\LEVODOPA
     Indication: PARKINSON^S DISEASE
     Route: 050
     Dates: start: 201304

REACTIONS (4)
  - Stoma site infection [Unknown]
  - Device related infection [Not Recovered/Not Resolved]
  - Stoma site discharge [Unknown]
  - Stoma site odour [Unknown]

NARRATIVE: CASE EVENT DATE: 20160910
